FAERS Safety Report 17498299 (Version 2)
Quarter: 2020Q1

REPORT INFORMATION
  Report Type: Report from Study
  Country: MX (occurrence: MX)
  Receive Date: 20200304
  Receipt Date: 20200310
  Transmission Date: 20200409
  Serious: Yes (Other)
  Sender: FDA-Public Use
  Company Number: NVSC2019MX056145

PATIENT
  Sex: Male

DRUGS (2)
  1. ENTRESTO [Suspect]
     Active Substance: SACUBITRIL\VALSARTAN
     Dosage: 1 DF, BID (100 MG)
     Route: 048
     Dates: start: 202001
  2. ENTRESTO [Suspect]
     Active Substance: SACUBITRIL\VALSARTAN
     Indication: CARDIAC FAILURE
     Dosage: 0.5 DF, BID (100 MG)
     Route: 048
     Dates: start: 20191127

REACTIONS (6)
  - Overweight [Recovering/Resolving]
  - Hunger [Unknown]
  - Cardiac disorder [Unknown]
  - Incorrect dose administered [Unknown]
  - Product prescribing error [Unknown]
  - Wrong technique in product usage process [Unknown]
